FAERS Safety Report 9189337 (Version 1)
Quarter: 2013Q1

REPORT INFORMATION
  Report Type: Report from Study
  Country: CA (occurrence: CA)
  Receive Date: 20130326
  Receipt Date: 20130326
  Transmission Date: 20140127
  Serious: Yes (Other)
  Sender: FDA-Public Use
  Company Number: CA-JNJFOC-20130308668

PATIENT
  Sex: Female
  Weight: 51 kg

DRUGS (6)
  1. REMICADE [Suspect]
     Indication: RHEUMATOID ARTHRITIS
     Dosage: 1ST INFUSION
     Route: 042
     Dates: start: 201008
  2. REMICADE [Suspect]
     Indication: RHEUMATOID ARTHRITIS
     Dosage: 3 VIALS
     Route: 042
     Dates: start: 201212
  3. PREDNISONE [Concomitant]
     Route: 065
     Dates: end: 201109
  4. ACETAMINOPHEN [Concomitant]
     Route: 065
  5. IBUPROFEN [Concomitant]
     Route: 065
  6. BENADRYL [Concomitant]
     Route: 065

REACTIONS (3)
  - Weight decreased [Unknown]
  - Myalgia [Unknown]
  - Multiple allergies [Unknown]
